FAERS Safety Report 4449561-7 (Version None)
Quarter: 2004Q3

REPORT INFORMATION
  Report Type: 
  Country: None (occurrence: None)
  Receive Date: 20040913
  Receipt Date: 20040913
  Transmission Date: 20050211
  Serious: Yes (Other)
  Sender: FDA-Public Use
  Company Number: None

PATIENT
  Age: 28 Year
  Sex: Female
  Weight: 56.6996 kg

DRUGS (4)
  1. EFFEXOR XR [Suspect]
     Indication: MAJOR DEPRESSION
     Dosage: 150 MG 1 DAILY ORAL
     Route: 048
     Dates: start: 20030505, end: 20040910
  2. EFFEXOR XR [Suspect]
     Dosage: 75 MG 1 DAILY ORAL
     Route: 048
  3. YASMIN [Concomitant]
  4. SEROQUEL [Concomitant]

REACTIONS (1)
  - DRUG WITHDRAWAL SYNDROME [None]
